FAERS Safety Report 7282724-4 (Version None)
Quarter: 2010Q4

REPORT INFORMATION
  Report Type: 
  Country: None (occurrence: None)
  Receive Date: 20101221
  Receipt Date: 20091020
  Transmission Date: 20110411
  Serious: Yes (Hospitalization)
  Sender: FDA-Public Use
  Company Number: WAES 0909USA04651

PATIENT
  Age: 57 Year
  Sex: Female
  Weight: 76.2043 kg

DRUGS (7)
  1. JANUVIA [Suspect]
     Indication: TYPE 2 DIABETES MELLITUS
     Dosage: 100 MG/DAILY/PO
     Route: 048
     Dates: start: 20090211, end: 20091008
  2. ADVAIR [Concomitant]
  3. AUGMENTIN '125' [Concomitant]
  4. GLUCOPHAGE [Concomitant]
  5. VICODIN [Concomitant]
  6. ALBUTEROL [Concomitant]
  7. GLIPIZIDE [Concomitant]

REACTIONS (1)
  - PANCREATITIS [None]
